FAERS Safety Report 6501876-4 (Version None)
Quarter: 2009Q4

REPORT INFORMATION
  Report Type: 
  Country: None (occurrence: None)
  Receive Date: 20091216
  Receipt Date: 20091209
  Transmission Date: 20100525
  Serious: Yes (Hospitalization)
  Sender: FDA-Public Use
  Company Number: FR-ABBOTT-09P-056-0595645-00

PATIENT
  Sex: Female
  Weight: 56 kg

DRUGS (2)
  1. HUMIRA [Suspect]
     Indication: RHEUMATOID ARTHRITIS
     Route: 058
     Dates: start: 20040318, end: 20090520
  2. ASPEGIC 1000 [Concomitant]
     Indication: THROMBOCYTOPENIA
     Dates: start: 20050401

REACTIONS (1)
  - MYELOPROLIFERATIVE DISORDER [None]
